FAERS Safety Report 14776006 (Version 1)
Quarter: 2018Q2

REPORT INFORMATION
  Report Type: Spontaneous
  Country: DE (occurrence: DE)
  Receive Date: 20180418
  Receipt Date: 20180418
  Transmission Date: 20180711
  Serious: Yes (Hospitalization)
  Sender: FDA-Public Use
  Company Number: PHHY2015DE177699

PATIENT
  Age: 66 Year
  Sex: Male
  Weight: 175 kg

DRUGS (10)
  1. CYTARABINE. [Suspect]
     Active Substance: CYTARABINE
     Dosage: 3800 MG, UNK (02 CYCLES)
     Route: 065
     Dates: start: 20150313
  2. DEXAMETHASONE. [Suspect]
     Active Substance: DEXAMETHASONE
     Indication: PRODUCT USED FOR UNKNOWN INDICATION
     Dosage: 40 MG, UNK (02 CYCLES)
     Route: 065
  3. TEMSIROLIMUS [Suspect]
     Active Substance: TEMSIROLIMUS
     Indication: PRODUCT USED FOR UNKNOWN INDICATION
     Dosage: 25 MG, UNK (02 CYCLES)
     Route: 065
  4. TEMSIROLIMUS [Suspect]
     Active Substance: TEMSIROLIMUS
     Dosage: 25 MG, UNK (02 CYCLES)
     Route: 065
     Dates: start: 20150310
  5. CISPLATIN. [Suspect]
     Active Substance: CISPLATIN
     Dosage: 190 MG, UNK (02 CYCLES)
     Route: 065
     Dates: start: 20150312
  6. RITUXIMAB. [Suspect]
     Active Substance: RITUXIMAB
     Dosage: 712.5 MG, UNK (02 CYCLES)
     Route: 065
     Dates: start: 20150311
  7. CISPLATIN. [Suspect]
     Active Substance: CISPLATIN
     Indication: PRODUCT USED FOR UNKNOWN INDICATION
     Dosage: 190 MG, UNK
     Route: 065
  8. RITUXIMAB. [Suspect]
     Active Substance: RITUXIMAB
     Indication: PRODUCT USED FOR UNKNOWN INDICATION
     Dosage: 712.5 MG, UNK
     Route: 065
  9. DEXAMETHASONE. [Suspect]
     Active Substance: DEXAMETHASONE
     Dosage: 40 MG, UNK (02 CYCLES)
     Route: 065
     Dates: start: 20150312
  10. CYTARABINE. [Suspect]
     Active Substance: CYTARABINE
     Indication: PRODUCT USED FOR UNKNOWN INDICATION
     Dosage: 3800 MG, UNK
     Route: 065

REACTIONS (1)
  - Renal failure [Recovered/Resolved]

NARRATIVE: CASE EVENT DATE: 20150315
